FAERS Safety Report 7081622-9 (Version None)
Quarter: 2010Q4

REPORT INFORMATION
  Report Type: 
  Country: None (occurrence: None)
  Receive Date: 20101103
  Receipt Date: 20101021
  Transmission Date: 20110411
  Serious: Yes (Other)
  Sender: FDA-Public Use
  Company Number: PHHY2010TR70995

PATIENT
  Sex: Female
  Weight: 55 kg

DRUGS (2)
  1. TASIGNA [Suspect]
     Indication: CHRONIC MYELOID LEUKAEMIA
     Dosage: 800 MG, UNK
     Route: 048
     Dates: start: 20101005, end: 20101012
  2. TASIGNA [Suspect]
     Dosage: 800 MG, UNK
     Route: 048
     Dates: start: 20101020

REACTIONS (2)
  - ELECTROCARDIOGRAM QT PROLONGED [None]
  - RASH [None]
